FAERS Safety Report 12462552 (Version 3)
Quarter: 2016Q3

REPORT INFORMATION
  Report Type: Spontaneous
  Country: JP (occurrence: JP)
  Receive Date: 20160614
  Receipt Date: 20160906
  Transmission Date: 20161109
  Serious: Yes (Other)
  Sender: FDA-Public Use
  Company Number: JP-ROCHE-1773738

PATIENT
  Age: 62 Year
  Sex: Male

DRUGS (7)
  1. EYLEA [Suspect]
     Active Substance: AFLIBERCEPT
     Dosage: 0.05 ML, UNK
     Route: 031
     Dates: start: 20151112
  2. EYLEA [Suspect]
     Active Substance: AFLIBERCEPT
     Dosage: 0.05 ML, UNK
     Route: 031
     Dates: start: 20160303
  3. LUCENTIS [Suspect]
     Active Substance: RANIBIZUMAB
     Indication: DIABETIC RETINAL OEDEMA
     Dosage: 0.05 ML, PER ADMINISTRATION  (IN BOTH RIGHT EYE AND RIGHT EYE)
     Route: 031
     Dates: start: 20140911
  4. EYLEA [Suspect]
     Active Substance: AFLIBERCEPT
     Dosage: 0.05 ML, UNK
     Route: 031
     Dates: start: 20150806
  5. EYLEA [Suspect]
     Active Substance: AFLIBERCEPT
     Dosage: 0.05 ML, UNK
     Route: 031
     Dates: start: 20150312
  6. EYLEA [Suspect]
     Active Substance: AFLIBERCEPT
     Dosage: 0.05 ML, UNK
     Route: 031
     Dates: start: 20150409
  7. EYLEA [Suspect]
     Active Substance: AFLIBERCEPT
     Indication: DIABETIC RETINAL OEDEMA
     Dosage: 0.05 ML, UNK
     Route: 031
     Dates: start: 20150212

REACTIONS (4)
  - Visual field defect [Recovered/Resolved]
  - Retinal ischaemia [Recovered/Resolved]
  - Visual acuity reduced [Recovered/Resolved]
  - Diabetic retinal oedema [Recovered/Resolved]

NARRATIVE: CASE EVENT DATE: 201502
